FAERS Safety Report 7115352-1 (Version None)
Quarter: 2010Q4

REPORT INFORMATION
  Report Type: 
  Country: None (occurrence: None)
  Receive Date: 20101122
  Receipt Date: 20101110
  Transmission Date: 20110411
  Serious: Yes (Other)
  Sender: FDA-Public Use
  Company Number: JP-BRISTOL-MYERS SQUIBB COMPANY-15393994

PATIENT
  Age: 62 Year
  Sex: Female

DRUGS (4)
  1. CISPLATIN [Suspect]
     Indication: HODGKIN'S DISEASE
     Route: 041
     Dates: start: 19980924, end: 19980928
  2. ETOPOSIDE [Suspect]
     Indication: HODGKIN'S DISEASE
     Dates: start: 19980924, end: 19980928
  3. METHYLPREDNISOLONE [Concomitant]
     Indication: HODGKIN'S DISEASE
     Dosage: FORM:INJ
     Route: 041
     Dates: start: 19980924, end: 19980928
  4. CYTARABINE [Concomitant]
     Dosage: FORM:INJ HIGH DOSE CYTARABINE
     Route: 042
     Dates: start: 19980924, end: 19980928

REACTIONS (1)
  - INAPPROPRIATE ANTIDIURETIC HORMONE SECRETION [None]
